FAERS Safety Report 6025919-X (Version None)
Quarter: 2009Q1

REPORT INFORMATION
  Report Type: 
  Country: None (occurrence: None)
  Receive Date: 20090102
  Receipt Date: 20081222
  Transmission Date: 20090719
  Serious: Yes (Other)
  Sender: FDA-Public Use
  Company Number: US-ROCHE-604602

PATIENT
  Age: 8 Year
  Sex: Female

DRUGS (11)
  1. MYCOPHENOLATE MOFETIL [Suspect]
     Route: 065
  2. VALGANCICLOVIR HCL [Suspect]
     Indication: DRUG USE FOR UNKNOWN INDICATION
     Route: 065
  3. VALGANCICLOVIR HCL [Suspect]
     Route: 065
  4. SULFAMETHOXAZOLE AND TRIMETHOPRIM [Suspect]
     Indication: PROPHYLAXIS URINARY TRACT INFECTION
     Route: 065
  5. TACROLIMUS [Suspect]
     Route: 065
  6. SIROLIMUS [Suspect]
     Dosage: DOSAGE REDUCED
     Route: 065
  7. SIROLIMUS [Suspect]
     Route: 065
  8. SIROLIMUS [Suspect]
     Dosage: TARGET LEVEL: 4-8 NG/DL.
     Route: 065
  9. PREDNISONE [Suspect]
     Dosage: DOSAGE REDUCED
     Route: 065
  10. PREDNISONE [Suspect]
     Route: 065
  11. PREDNISONE [Suspect]
     Route: 065

REACTIONS (4)
  - CHRONIC ALLOGRAFT NEPHROPATHY [None]
  - EPSTEIN-BARR VIRUS ASSOCIATED LYMPHOPROLIFERATIVE DISORDER [None]
  - GASTROINTESTINAL DISORDER [None]
  - URINARY TRACT INFECTION [None]
